FAERS Safety Report 14066759 (Version 2)
Quarter: 2017Q4

REPORT INFORMATION
  Report Type: Spontaneous
  Country: FR (occurrence: FR)
  Receive Date: 20171010
  Receipt Date: 20171207
  Transmission Date: 20180321
  Serious: Yes (Other)
  Sender: FDA-Public Use
  Company Number: FR-MERCK KGAA-2029368

PATIENT
  Age: 48 Year
  Sex: Female
  Weight: 115 kg

DRUGS (4)
  1. DAFLON [Concomitant]
     Active Substance: DIOSMIN\HESPERIDIN
  2. NOVOTHYROX [Suspect]
     Active Substance: LEVOTHYROXINE SODIUM
     Indication: HYPOTHYROIDISM
     Route: 048
     Dates: start: 20170701
  3. SEROPLEX [Concomitant]
     Active Substance: ESCITALOPRAM OXALATE
  4. AVLOCARDYL [Concomitant]
     Active Substance: PROPRANOLOL HYDROCHLORIDE

REACTIONS (8)
  - Hypothyroidism [Not Recovered/Not Resolved]
  - Insomnia [Recovering/Resolving]
  - Myalgia [Recovered/Resolved]
  - Speech disorder [Not Recovered/Not Resolved]
  - Headache [Recovered/Resolved]
  - Therapeutic response decreased [Not Recovered/Not Resolved]
  - Asthenia [Recovering/Resolving]
  - Coordination abnormal [Not Recovered/Not Resolved]

NARRATIVE: CASE EVENT DATE: 201707
